FAERS Safety Report 16225681 (Version 1)
Quarter: 2019Q2

REPORT INFORMATION
  Report Type: Spontaneous
  Country: GB (occurrence: GB)
  Receive Date: 20190422
  Receipt Date: 20190422
  Transmission Date: 20190711
  Serious: Yes (Death, Life-Threatening)
  Sender: FDA-Public Use
  Company Number: GB-BAXTER-2018BAX030275

PATIENT
  Age: 67 Year
  Sex: Male
  Weight: 69.85 kg

DRUGS (8)
  1. KEPPRA [Suspect]
     Active Substance: LEVETIRACETAM
     Indication: GENERALISED TONIC-CLONIC SEIZURE
     Route: 065
     Dates: start: 2015
  2. PHENYTOIN. [Suspect]
     Active Substance: PHENYTOIN
     Indication: GENERALISED TONIC-CLONIC SEIZURE
     Route: 051
     Dates: start: 20160427, end: 20160508
  3. PARACETAMOL [Suspect]
     Active Substance: ACETAMINOPHEN
     Indication: GENERALISED TONIC-CLONIC SEIZURE
     Route: 051
     Dates: start: 20160427, end: 20160508
  4. TEICOPLANIN [Suspect]
     Active Substance: TEICOPLANIN
     Indication: INFECTION
     Route: 051
     Dates: start: 20160427, end: 20160508
  5. CIPROFLOXACIN 2 MG/ML SOLUTION FOR INFUSION [Suspect]
     Active Substance: CIPROFLOXACIN
     Indication: INFECTION
     Route: 051
     Dates: start: 20160427, end: 20160508
  6. SODIUM CHLORIDE 0.9% INTRAVENOUS INFUSION BP [Suspect]
     Active Substance: SODIUM CHLORIDE
     Indication: PRODUCT USED FOR UNKNOWN INDICATION
     Route: 042
  7. KEPPRA [Suspect]
     Active Substance: LEVETIRACETAM
     Route: 051
     Dates: start: 20160427, end: 20160506
  8. ENOXAPARIN [Suspect]
     Active Substance: ENOXAPARIN
     Indication: PRODUCT USED FOR UNKNOWN INDICATION
     Route: 051
     Dates: start: 20160427, end: 20160508

REACTIONS (11)
  - Dyspnoea [Not Recovered/Not Resolved]
  - Abdominal pain [Unknown]
  - Faeces discoloured [Unknown]
  - Abdominal distension [Not Recovered/Not Resolved]
  - Dysphagia [Not Recovered/Not Resolved]
  - Melaena [Unknown]
  - Depression [Unknown]
  - Anxiety [Unknown]
  - Tongue coated [Recovered/Resolved]
  - Gastrointestinal haemorrhage [Fatal]
  - Crying [Unknown]

NARRATIVE: CASE EVENT DATE: 20160429
